FAERS Safety Report 16379542 (Version 5)
Quarter: 2019Q3

REPORT INFORMATION
  Report Type: Spontaneous
  Country: US (occurrence: US)
  Receive Date: 20190531
  Receipt Date: 20190820
  Transmission Date: 20191004
  Serious: Yes (Death, Hospitalization)
  Sender: FDA-Public Use
  Company Number: US-ACTELION-A-NJ2019-191072

PATIENT
  Age: 79 Year
  Sex: Male

DRUGS (4)
  1. VELETRI [Suspect]
     Active Substance: EPOPROSTENOL
     Indication: PULMONARY ARTERIAL HYPERTENSION
     Dosage: 10 NG/KG, PER MIN
     Route: 042
     Dates: start: 20170125
  2. VELETRI [Suspect]
     Active Substance: EPOPROSTENOL
     Dosage: 10.25 MG, CONT INFUS
     Route: 042
     Dates: end: 20190615
  3. VELETRI [Suspect]
     Active Substance: EPOPROSTENOL
     Dosage: 8.75 MG, CONT INFUS
     Route: 042
     Dates: start: 20170127
  4. ADCIRCA [Concomitant]
     Active Substance: TADALAFIL
     Dosage: 2 TABS ONCE DAILY
     Dates: start: 20170125

REACTIONS (3)
  - Gastrointestinal haemorrhage [Fatal]
  - Acute respiratory failure [Fatal]
  - Myocardial infarction [Fatal]

NARRATIVE: CASE EVENT DATE: 201904
